FAERS Safety Report 9316797 (Version 1)
Quarter: 2013Q2

REPORT INFORMATION
  Report Type: Spontaneous
  Country: FR (occurrence: None)
  Receive Date: 20130523
  Receipt Date: 20130523
  Transmission Date: 20140414
  Serious: Yes (Hospitalization)
  Sender: FDA-Public Use
  Company Number: SYM-2013-03856

PATIENT
  Age: 77 Year
  Sex: Male

DRUGS (2)
  1. FLAGYL [Suspect]
     Indication: DIARRHOEA
     Route: 042
     Dates: start: 20120221, end: 20120223
  2. ROCEPHIN (CEFTRIAXONE SODIUM) [Suspect]
     Indication: DIARRHOEA
     Route: 042
     Dates: start: 20120221, end: 20120223

REACTIONS (3)
  - Rash erythematous [None]
  - Rash [None]
  - Hypotension [None]
